FAERS Safety Report 8576688-0 (Version None)
Quarter: 2012Q3

REPORT INFORMATION
  Report Type: 
  Country: None (occurrence: None)
  Receive Date: 20120807
  Receipt Date: 20120730
  Transmission Date: 20120928
  Serious: Yes (Hospitalization)
  Sender: FDA-Public Use
  Company Number: US-GLAXOSMITHKLINE-A0876824A

PATIENT
  Age: 61 Year
  Sex: Female

DRUGS (5)
  1. PREVACID [Concomitant]
  2. PREMARIN [Concomitant]
     Dates: end: 20090801
  3. LISINOPRIL [Concomitant]
  4. SIMVASTATIN [Concomitant]
  5. AVANDAMET [Suspect]
     Indication: TYPE 2 DIABETES MELLITUS
     Route: 048
     Dates: start: 20040101, end: 20090807

REACTIONS (3)
  - MYOCARDIAL INFARCTION [None]
  - CORONARY ARTERY DISEASE [None]
  - CARDIAC FAILURE CONGESTIVE [None]
